FAERS Safety Report 11079594 (Version 2)
Quarter: 2015Q2

REPORT INFORMATION
  Report Type: Spontaneous
  Country: US (occurrence: US)
  Receive Date: 20150430
  Receipt Date: 20150630
  Transmission Date: 20150821
  Serious: Yes (Death)
  Sender: FDA-Public Use
  Company Number: US-PFIZER INC-2015148109

PATIENT
  Age: 62 Year
  Sex: Female

DRUGS (1)
  1. SOMAVERT [Suspect]
     Active Substance: PEGVISOMANT
     Indication: ACROMEGALY
     Dosage: 10 MG, 1X/DAY (DAILYX 7 DAYS A WEEK)
     Dates: start: 201211

REACTIONS (1)
  - Chronic obstructive pulmonary disease [Fatal]
